FAERS Safety Report 6252623-5 (Version None)
Quarter: 2009Q3

REPORT INFORMATION
  Report Type: 
  Country: None (occurrence: None)
  Receive Date: 20090701
  Receipt Date: 20090623
  Transmission Date: 20100115
  Serious: Yes (Hospitalization)
  Sender: FDA-Public Use
  Company Number: DE-ROCHE-640751

PATIENT
  Age: 25 Year

DRUGS (13)
  1. MYCOPHENOLATE MOFETIL [Suspect]
     Indication: RENAL TRANSPLANT
     Dosage: FREQUENCY REPORTED AS 2, TEMPORARILY INTERRUPTED; LAST DOSE PRIOR TO SAE: 14 JUNE 2009.
     Route: 048
     Dates: start: 20090610
  2. RITUXIMAB [Suspect]
     Indication: RENAL TRANSPLANT
     Dosage: FREQUENCY REPORTED AS 1.
     Route: 042
     Dates: start: 20090615
  3. PROGRAF [Suspect]
     Indication: RENAL TRANSPLANT
     Dosage: FREQUENCY: 2. LAST DOSE PRIOR TO SAE: 14 JUNE 2009.
     Route: 048
     Dates: start: 20090527
  4. DECORTIN H [Suspect]
     Indication: RENAL TRANSPLANT
     Dosage: FREQUENCY REPORTED AS 1.
     Route: 048
  5. METOPROLOL SUCCINATE [Concomitant]
  6. LEVOTHYROXINE SODIUM [Concomitant]
  7. KALIUM [Concomitant]
  8. MARCUMAR [Concomitant]
  9. OMEPRAZOL [Concomitant]
  10. IMODIUM [Concomitant]
  11. COTRIM [Concomitant]
  12. BICA NORM [Concomitant]
     Dosage: DRUG: BICARNORM.
  13. METHOTREXATE [Concomitant]
     Dates: start: 20080726

REACTIONS (1)
  - DRUG INTOLERANCE [None]
